FAERS Safety Report 9433343 (Version 1)
Quarter: 2013Q3

REPORT INFORMATION
  Report Type: Spontaneous
  Country: US (occurrence: US)
  Receive Date: 20130731
  Receipt Date: 20130731
  Transmission Date: 20140515
  Serious: No
  Sender: FDA-Public Use
  Company Number: US-PFIZER INC-2013219938

PATIENT
  Age: 66 Year
  Sex: 0

DRUGS (1)
  1. TORISEL [Suspect]
     Dosage: UNK
     Dates: start: 2013

REACTIONS (1)
  - Skin lesion [Unknown]
